FAERS Safety Report 12617995 (Version 1)
Quarter: 2016Q3

REPORT INFORMATION
  Report Type: Spontaneous
  Country: US (occurrence: None)
  Receive Date: 20160802
  Receipt Date: 20160802
  Transmission Date: 20161109
  Serious: Yes (Disabling)
  Sender: FDA-Public Use
  Company Number: None

PATIENT
  Age: 71 Year
  Sex: Female
  Weight: 66.23 kg

DRUGS (15)
  1. NORVASC [Concomitant]
     Active Substance: AMLODIPINE BESYLATE
  2. EVISTA [Suspect]
     Active Substance: RALOXIFENE HYDROCHLORIDE
     Indication: OSTEOPOROSIS
     Dosage: 60MG/ML 1  INJECTION EVERY 6 MONTHS 6 MONTHS INJECTION
     Dates: start: 20130115, end: 20160115
  3. METOPROLOL TARTRATE. [Concomitant]
     Active Substance: METOPROLOL TARTRATE
  4. ASPIRIN. [Concomitant]
     Active Substance: ASPIRIN
  5. CLARITIN [Concomitant]
     Active Substance: LORATADINE
  6. CLOBETASOL PROP [Concomitant]
  7. FISH OIL [Concomitant]
     Active Substance: FISH OIL
  8. CRESTOR [Concomitant]
     Active Substance: ROSUVASTATIN CALCIUM
  9. VALTREX [Concomitant]
     Active Substance: VALACYCLOVIR HYDROCHLORIDE
  10. KETOCONAZOLE 2% [Concomitant]
     Active Substance: KETOCONAZOLE
  11. DESOXIMETASONE. [Concomitant]
     Active Substance: DESOXIMETASONE
  12. TRIAMCINOLONE ACETONIDE. [Concomitant]
     Active Substance: TRIAMCINOLONE ACETONIDE
  13. MULTI-VITAMIN [Concomitant]
     Active Substance: .ALPHA.-TOCOPHEROL ACETATE, DL-\ASCORBIC ACID\CYANOCOBALAMIN\FLUORIDE ION\FOLIC ACID\NIACIN\PYRIDOXINE\RIBOFLAVIN\THIAMINE\VITAMIN A\VITAMIN D
  14. OMEPRAZOLE. [Concomitant]
     Active Substance: OMEPRAZOLE
  15. LOTEMAX [Concomitant]
     Active Substance: LOTEPREDNOL ETABONATE

REACTIONS (5)
  - Skin exfoliation [None]
  - Urinary tract infection [None]
  - Constipation [None]
  - Rash [None]
  - Abdominal pain lower [None]

NARRATIVE: CASE EVENT DATE: 20140705
